FAERS Safety Report 9967988 (Version 1)
Quarter: 2014Q1

REPORT INFORMATION
  Report Type: Report from Study
  Country: US (occurrence: US)
  Receive Date: 20140306
  Receipt Date: 20140306
  Transmission Date: 20141002
  Serious: No
  Sender: FDA-Public Use
  Company Number: US-ABBVIE-13P-163-1142102-00

PATIENT
  Age: 61 Year
  Sex: Female

DRUGS (6)
  1. HUMIRA [Suspect]
     Indication: CROHN^S DISEASE
     Dates: start: 20130605
  2. LEVOTHYROXINE [Concomitant]
     Indication: HYPOTHYROIDISM
     Dosage: 100 MCG DAILY
     Route: 048
  3. ATACAND [Concomitant]
     Indication: HYPERTENSION
     Dosage: 16 MG DAILY
     Route: 048
  4. ALIGN [Concomitant]
     Indication: CROHN^S DISEASE
     Dosage: 1 CAP DAILY
     Route: 048
  5. VITAMIN C [Concomitant]
     Indication: VITAMIN SUPPLEMENTATION
     Dosage: 1 TAB DAILY
     Route: 048
  6. VITAMIN D3 [Concomitant]
     Indication: PRODUCT USED FOR UNKNOWN INDICATION
     Dosage: 1 TAB DAILY
     Route: 048

REACTIONS (1)
  - Nausea [Not Recovered/Not Resolved]
